FAERS Safety Report 25725558 (Version 1)
Quarter: 2025Q3

REPORT INFORMATION
  Report Type: Spontaneous
  Country: US (occurrence: US)
  Receive Date: 20250826
  Receipt Date: 20250826
  Transmission Date: 20251020
  Serious: No
  Sender: UROGEN PHARMA
  Company Number: US-UROGEN PHARMA LTD.-2025-UGN-000124

PATIENT

DRUGS (3)
  1. JELMYTO [Suspect]
     Active Substance: MITOMYCIN
     Indication: Transitional cell cancer of the renal pelvis and ureter
     Dates: start: 20250613, end: 20250613
  2. JELMYTO [Suspect]
     Active Substance: MITOMYCIN
     Dates: start: 20250620, end: 20250620
  3. JELMYTO [Suspect]
     Active Substance: MITOMYCIN
     Dates: start: 20250627, end: 20250627

REACTIONS (1)
  - Urinary tract infection [Recovered/Resolved]

NARRATIVE: CASE EVENT DATE: 20250701
